FAERS Safety Report 5001864-3 (Version None)
Quarter: 2006Q2

REPORT INFORMATION
  Report Type: 
  Country: None (occurrence: None)
  Receive Date: 20060512
  Receipt Date: 20060512
  Transmission Date: 20061013
  Serious: Yes (Hospitalization)
  Sender: FDA-Public Use
  Company Number: None

PATIENT
  Age: 51 Year
  Sex: Male

DRUGS (4)
  1. PHENYTOIN [Suspect]
     Indication: CONVULSION
     Dates: start: 20060322, end: 20060325
  2. DILANTIN [Concomitant]
  3. PLAVIX [Concomitant]
  4. COREG [Concomitant]

REACTIONS (3)
  - COORDINATION ABNORMAL [None]
  - DRUG LEVEL CHANGED [None]
  - HALLUCINATION, VISUAL [None]
